FAERS Safety Report 8406820 (Version 2)
Quarter: 2013Q2

REPORT INFORMATION
  Report Type: Spontaneous
  Country: US (occurrence: None)
  Receive Date: 20111227
  Receipt Date: 20121031
  Transmission Date: 20140414
  Serious: Yes (Other)
  Sender: FDA-Public Use
  Company Number: PHEH2011US05278

PATIENT
  Age: 58 Year
  Sex: Female

DRUGS (14)
  1. GILENYA [Suspect]
     Indication: MULTIPLE SCLEROSIS
     Dosage: 0.5 MG, DAILY, ORAL
     Route: 048
     Dates: start: 20110404
  2. METOPROLOL (METOPROLOL) [Concomitant]
  3. TRICOR (FENOFIBRATE) [Concomitant]
  4. LIPITOR (ATORVASTATIN) [Concomitant]
  5. PLAVIX (CLOPIDOGREL SULFATE) [Concomitant]
  6. TIZANIDINE (TIZANIDINE) [Concomitant]
  7. RANITIDINE (RANITIDINE) [Concomitant]
  8. AMITRIPTYLINE (AMITRIPTYLINE) [Concomitant]
  9. AMBIEN (ZOLPIDEM TARTRATE) [Concomitant]
  10. CYMBALTA (DULOXETINE HYDROCHLORIDE) [Concomitant]
  11. NEXIUM (ESOMEPRAZOLE MAGNESIUM) [Concomitant]
  12. SENSIPAR (CINACALCET HYDROCHLORIDE) [Concomitant]
  13. RENVELA (SEVELAMER) [Concomitant]
  14. NARATRIPTAN (NARATRIPTAN) [Concomitant]

REACTIONS (3)
  - VISUAL IMPAIRMENT [None]
  - Blood pressure increased [None]
  - Disorientation [None]
